FAERS Safety Report 19395027 (Version 1)
Quarter: 2021Q2

REPORT INFORMATION
  Report Type: Spontaneous
  Country: CA (occurrence: CA)
  Receive Date: 20210609
  Receipt Date: 20210609
  Transmission Date: 20210717
  Serious: Yes (Hospitalization, Other)
  Sender: FDA-Public Use
  Company Number: CA-AMGEN-CANSP2021084964

PATIENT

DRUGS (5)
  1. NEUPOGEN [Suspect]
     Active Substance: FILGRASTIM
     Indication: PROPHYLAXIS
     Route: 065
  2. DOCETAXEL. [Concomitant]
     Active Substance: DOCETAXEL
     Indication: PRODUCT USED FOR UNKNOWN INDICATION
  3. CYCLOPHOSPHAMIDE. [Concomitant]
     Active Substance: CYCLOPHOSPHAMIDE
     Indication: PRODUCT USED FOR UNKNOWN INDICATION
  4. CIPROFLOXACIN. [Concomitant]
     Active Substance: CIPROFLOXACIN
     Indication: PRODUCT USED FOR UNKNOWN INDICATION
     Dosage: 500 MILLIGRAM, BID
     Route: 048
  5. NEULASTA [Suspect]
     Active Substance: PEGFILGRASTIM
     Indication: PROPHYLAXIS
     Route: 065

REACTIONS (38)
  - Sinus tachycardia [Unknown]
  - Thrombosis [Unknown]
  - Neuropathy peripheral [Unknown]
  - Herpes zoster [Unknown]
  - Fatigue [Unknown]
  - Rash [Unknown]
  - Cholangitis [Unknown]
  - Staphylococcal infection [Unknown]
  - Subcutaneous abscess [Unknown]
  - Root canal infection [Unknown]
  - Mucosal inflammation [Unknown]
  - Arthralgia [Unknown]
  - Vomiting [Unknown]
  - Dehydration [Unknown]
  - Infection [Unknown]
  - Pancreatitis [Unknown]
  - Pain [Unknown]
  - Malaise [Unknown]
  - Clostridium difficile infection [Unknown]
  - Unevaluable event [Unknown]
  - Hepatic enzyme abnormal [Unknown]
  - Pneumonitis [Unknown]
  - Nephropathy toxic [Unknown]
  - Neutrophil count decreased [Unknown]
  - Myalgia [Unknown]
  - Febrile neutropenia [Unknown]
  - Cellulitis [Unknown]
  - Colitis [Unknown]
  - Appendicitis [Unknown]
  - Endocarditis [Unknown]
  - Diverticulitis intestinal perforated [Unknown]
  - Pyrexia [Unknown]
  - Chest pain [Unknown]
  - Diarrhoea [Unknown]
  - Insomnia [Unknown]
  - Nausea [Unknown]
  - Pulmonary embolism [Unknown]
  - White blood cell count increased [Unknown]
